FAERS Safety Report 15727087 (Version 7)
Quarter: 2020Q4

REPORT INFORMATION
  Report Type: Report from Study
  Country: JP (occurrence: JP)
  Receive Date: 20181217
  Receipt Date: 20201016
  Transmission Date: 20210113
  Serious: Yes (Other)
  Sender: FDA-Public Use
  Company Number: JP-BRISTOL-MYERS SQUIBB COMPANY-BMS-2018-117845

PATIENT
  Age: 31 Year
  Sex: Female
  Weight: 54 kg

DRUGS (3)
  1. NIVOLUMAB [Suspect]
     Active Substance: NIVOLUMAB
     Dosage: 0.25 MILLIGRAM/KILOGRAM
     Route: 041
     Dates: start: 20181015, end: 20190327
  2. NIVOLUMAB [Suspect]
     Active Substance: NIVOLUMAB
     Indication: HODGKIN^S DISEASE
     Dosage: 0.5 MILLIGRAM/KILOGRAM
     Route: 041
     Dates: start: 20180511
  3. NIVOLUMAB [Suspect]
     Active Substance: NIVOLUMAB
     Dosage: 1 MILLIGRAM/KILOGRAM
     Route: 041
     Dates: start: 20180525

REACTIONS (6)
  - Dry eye [Not Recovered/Not Resolved]
  - Prescribed underdose [Unknown]
  - Obliterative bronchiolitis [Not Recovered/Not Resolved]
  - Hepatic function abnormal [Not Recovered/Not Resolved]
  - Rash maculo-papular [Not Recovered/Not Resolved]
  - Stomatitis [Not Recovered/Not Resolved]

NARRATIVE: CASE EVENT DATE: 20180704
